FAERS Safety Report 6553619-6 (Version None)
Quarter: 2010Q1

REPORT INFORMATION
  Report Type: 
  Country: None (occurrence: None)
  Receive Date: 20100127
  Receipt Date: 20100117
  Transmission Date: 20100710
  Serious: Yes (Death)
  Sender: FDA-Public Use
  Company Number: KR-PFIZER INC-2009283315

PATIENT
  Age: 58 Year
  Sex: Female
  Weight: 49 kg

DRUGS (3)
  1. VORICONAZOLE [Suspect]
     Indication: SYSTEMIC CANDIDA
     Dosage: 200 MG, 2X/DAY
     Route: 042
     Dates: start: 20081030, end: 20081101
  2. VORICONAZOLE [Suspect]
     Indication: CANDIDIASIS
  3. INVANZ [Concomitant]
     Indication: BACTERIAL INFECTION
     Dosage: 1 G, 1X/DAY
     Route: 048
     Dates: start: 20080930, end: 20081101

REACTIONS (1)
  - FUNGAL INFECTION [None]
